FAERS Safety Report 4507681-2 (Version None)
Quarter: 2004Q4

REPORT INFORMATION
  Report Type: 
  Country: None (occurrence: None)
  Receive Date: 20041118
  Receipt Date: 20041102
  Transmission Date: 20050328
  Serious: Yes (Other)
  Sender: FDA-Public Use
  Company Number: 2003-BP-02390BP

PATIENT

DRUGS (2)
  1. VIRAMUNE [Suspect]
     Indication: HUMAN IMMUNODEFICIENCY VIRUS TRANSMISSION
     Dosage: (ONCE), PO
     Route: 048
     Dates: start: 19981126, end: 19981126
  2. VIRAMUNE [Suspect]
     Indication: PROPHYLAXIS
     Dosage: (ONCE), PO
     Route: 048
     Dates: start: 19981126, end: 19981126

REACTIONS (13)
  - ATTENTION DEFICIT/HYPERACTIVITY DISORDER [None]
  - COGNITIVE DISORDER [None]
  - DEVELOPMENTAL DELAY [None]
  - DRUG EXPOSURE DURING PREGNANCY [None]
  - FEBRILE CONVULSION [None]
  - HYPOTHYROIDISM [None]
  - LEARNING DISABILITY [None]
  - MITOCHONDRIAL CYTOPATHY [None]
  - MOTOR DYSFUNCTION [None]
  - NEONATAL DISORDER [None]
  - NERVOUS SYSTEM DISORDER [None]
  - PARTIAL SEIZURES [None]
  - SPEECH DISORDER DEVELOPMENTAL [None]
